FAERS Safety Report 12012847 (Version 3)
Quarter: 2016Q1

REPORT INFORMATION
  Report Type: Spontaneous
  Country: JP (occurrence: JP)
  Receive Date: 20160205
  Receipt Date: 20160328
  Transmission Date: 20160526
  Serious: Yes (Other)
  Sender: FDA-Public Use
  Company Number: JP-MALLINCKRODT-T201600341

PATIENT
  Age: 74 Year
  Sex: Female
  Weight: 43 kg

DRUGS (17)
  1. METHADONE [Suspect]
     Active Substance: METHADONE HYDROCHLORIDE
     Indication: CANCER PAIN
     Dosage: 5 MG, 15 MG DAILY DOSE
     Route: 048
     Dates: start: 20140918, end: 20140924
  2. LANSOPRAZOLE. [Concomitant]
     Active Substance: LANSOPRAZOLE
     Dosage: 15 MG
     Route: 048
     Dates: start: 20140315
  3. FURUSEMIDE [Concomitant]
     Dosage: 20 MG
     Route: 048
     Dates: start: 20141001
  4. METHADONE [Suspect]
     Active Substance: METHADONE HYDROCHLORIDE
     Dosage: 10 MG, 30 MG DAILY DOSE
     Route: 048
     Dates: start: 20141003, end: 20141007
  5. ONEDURO [Concomitant]
     Active Substance: FENTANYL
     Dosage: 4.24 MG
     Route: 062
     Dates: end: 20140924
  6. ONEDURO [Concomitant]
     Active Substance: FENTANYL
     Dosage: 3.38 MG
     Route: 062
     Dates: end: 20141002
  7. MAGMITT [Concomitant]
     Active Substance: MAGNESIUM OXIDE
     Dosage: 1000 MG
     Route: 048
     Dates: start: 20140503
  8. METHADONE [Suspect]
     Active Substance: METHADONE HYDROCHLORIDE
     Dosage: 10 MG, 20 MG DAILY DOSE
     Route: 048
     Dates: start: 20140925, end: 20141002
  9. ETIZOLAM [Concomitant]
     Active Substance: ETIZOLAM
     Dosage: 0.5 MG
     Route: 048
     Dates: start: 20140802
  10. ONEDURO [Concomitant]
     Active Substance: FENTANYL
     Indication: ANALGESIC THERAPY
     Dosage: 5.94 MG
     Route: 062
     Dates: start: 20140911
  11. AMOBAN [Concomitant]
     Active Substance: ZOPICLONE
     Dosage: 7.5 MG
     Route: 048
     Dates: start: 20140823
  12. ONEDURO [Concomitant]
     Active Substance: FENTANYL
     Dosage: 2.54 MG
     Route: 062
     Dates: start: 20140809
  13. CALONAL [Concomitant]
     Active Substance: ACETAMINOPHEN
     Indication: ANALGESIC THERAPY
     Dosage: 2400 MG
     Route: 048
     Dates: start: 20140315, end: 20140927
  14. CALMDOWN [Concomitant]
     Active Substance: ALPRAZOLAM
     Dosage: 0.4 MG
     Route: 048
     Dates: start: 20140816, end: 20141006
  15. DESYREL [Concomitant]
     Active Substance: TRAZODONE HYDROCHLORIDE
     Dosage: 50 MG
     Route: 048
     Dates: start: 20140816, end: 20140919
  16. MORPHINE HCL [Concomitant]
     Active Substance: MORPHINE HYDROCHLORIDE
     Indication: ANALGESIC THERAPY
     Dosage: 20 MG, PRN
     Route: 048
     Dates: start: 20140919
  17. SENNARIDE [Concomitant]
     Active Substance: SENNOSIDES A AND B
     Dosage: 24 MG
     Route: 048

REACTIONS (1)
  - Delirium [Recovering/Resolving]

NARRATIVE: CASE EVENT DATE: 20141007
